FAERS Safety Report 15548224 (Version 1)
Quarter: 2018Q4

REPORT INFORMATION
  Report Type: Spontaneous
  Country: US (occurrence: US)
  Receive Date: 20181024
  Receipt Date: 20181024
  Transmission Date: 20190205
  Serious: No
  Sender: FDA-Public Use
  Company Number: US-TOLMAR, INC.-TOLG20180605

PATIENT
  Sex: Female

DRUGS (1)
  1. CLINDAMYCIN AND BENZOYL PEROXIDE [Suspect]
     Active Substance: BENZOYL PEROXIDE\CLINDAMYCIN PHOSPHATE
     Indication: PRODUCT DISPENSING ISSUE
     Dosage: UNKNOWN
     Route: 061

REACTIONS (3)
  - Product package associated injury [Unknown]
  - Product packaging issue [None]
  - Skin laceration [Unknown]

NARRATIVE: CASE EVENT DATE: 20181017
